FAERS Safety Report 10011472 (Version 2)
Quarter: 2014Q2

REPORT INFORMATION
  Report Type: Spontaneous
  Country: IT (occurrence: IT)
  Receive Date: 20140314
  Receipt Date: 20140414
  Transmission Date: 20141212
  Serious: Yes (Hospitalization)
  Sender: FDA-Public Use
  Company Number: IT-SA-2014SA029546

PATIENT
  Age: 67 Year
  Sex: Male

DRUGS (8)
  1. IRBESARTAN [Suspect]
     Indication: HYPERTENSION
     Route: 048
     Dates: start: 20130101, end: 20140210
  2. SPIRONOLACTONE [Suspect]
     Indication: HYPERTENSION
     Route: 048
     Dates: start: 20130101, end: 20140210
  3. LASIX [Concomitant]
     Route: 048
  4. DILATREND [Concomitant]
     Route: 048
  5. ATORVASTATIN [Concomitant]
     Route: 048
  6. RANITIDINE [Concomitant]
     Route: 048
  7. TRIMETAZIDINE [Concomitant]
     Route: 048
  8. HYDROCHLOROTHIAZIDE [Concomitant]
     Route: 048

REACTIONS (5)
  - Abdominal pain upper [Unknown]
  - Angina unstable [Unknown]
  - Cold sweat [Unknown]
  - Vomiting [Unknown]
  - Nausea [Unknown]
